FAERS Safety Report 25514916 (Version 2)
Quarter: 2025Q3

REPORT INFORMATION
  Report Type: Report from Study
  Country: US (occurrence: US)
  Receive Date: 20250703
  Receipt Date: 20250724
  Transmission Date: 20251020
  Serious: Yes (Hospitalization, Other)
  Sender: JOHNSON AND JOHNSON
  Company Number: US-JNJFOC-20250633609

PATIENT
  Age: 39 Year
  Sex: Female

DRUGS (2)
  1. SPRAVATO [Suspect]
     Active Substance: ESKETAMINE
     Indication: Depression
     Route: 045
     Dates: start: 20250408, end: 20250408
  2. SPRAVATO [Suspect]
     Active Substance: ESKETAMINE
     Dosage: ^84 MG, 19 TOTAL DOSES^
     Route: 045
     Dates: start: 20250410, end: 20250715

REACTIONS (4)
  - Hysterectomy [Unknown]
  - Nephrolithiasis [Recovered/Resolved]
  - Therapeutic product effect decreased [Unknown]
  - Depression [Recovering/Resolving]

NARRATIVE: CASE EVENT DATE: 20250101
